FAERS Safety Report 19785527 (Version 1)
Quarter: 2021Q3

REPORT INFORMATION
  Report Type: Report from Study
  Country: CA (occurrence: CA)
  Receive Date: 20210903
  Receipt Date: 20210903
  Transmission Date: 20211014
  Serious: Yes (Other)
  Sender: FDA-Public Use
  Company Number: NVSC2021CA197017

PATIENT
  Age: 77 Year
  Sex: Male

DRUGS (3)
  1. CLOBETASOL PROPIONATE. [Suspect]
     Active Substance: CLOBETASOL PROPIONATE
     Indication: URTICARIA
     Dosage: UNK UNK, QD (DOSE 2)
     Route: 061
     Dates: start: 2021
  2. AERIUS [Concomitant]
     Indication: URTICARIA
     Dosage: 4 DF, QD
     Route: 048
  3. CETRIZINE [Concomitant]
     Active Substance: CETIRIZINE HYDROCHLORIDE
     Indication: HYPERSENSITIVITY
     Dosage: 3 DF, QD
     Route: 048
     Dates: start: 20210702

REACTIONS (2)
  - Pruritus [Unknown]
  - Suicidal behaviour [Unknown]

NARRATIVE: CASE EVENT DATE: 20210827
